FAERS Safety Report 8371711-0 (Version None)
Quarter: 2012Q2

REPORT INFORMATION
  Report Type: 
  Country: None (occurrence: None)
  Receive Date: 20120518
  Receipt Date: 20120508
  Transmission Date: 20120825
  Serious: Yes (Other)
  Sender: FDA-Public Use
  Company Number: GB-ROCHE-1049261

PATIENT

DRUGS (2)
  1. BEVACIZUMAB [Suspect]
     Indication: PRODUCT USED FOR UNKNOWN INDICATION
     Dosage: 1.25 MG/0.05 ML
     Route: 050
     Dates: start: 20120120
  2. CHLORAMPHENICOL [Concomitant]

REACTIONS (1)
  - UVEITIS [None]
